FAERS Safety Report 7296859-3 (Version None)
Quarter: 2011Q1

REPORT INFORMATION
  Report Type: 
  Country: None (occurrence: None)
  Receive Date: 20110204
  Receipt Date: 20110120
  Transmission Date: 20110831
  Serious: Yes (Hospitalization)
  Sender: FDA-Public Use
  Company Number: DSA_44821_2011

PATIENT
  Age: 68 Year
  Sex: Female

DRUGS (7)
  1. RIVOTRIL (RIVOTRIL-CLONAZEPAM) 2 MG (NOT SPECIFIED) [Suspect]
     Indication: EPILEPSY
     Dosage: 3 MG QD ORAL
     Route: 048
     Dates: start: 20090101
  2. SEROQUEL [Suspect]
     Indication: BIPOLAR DISORDER
     Dosage: 75 MG QD ORAL
     Route: 048
     Dates: start: 20090101
  3. ENALAPRIL MALEATE AND HYDROCHLOROTHIAZIDE [Suspect]
     Indication: HYPERTENSION
     Dosage: 20-12.5 MG, ONCE A DAY ORAL
     Route: 048
     Dates: start: 20090101
  4. MIRTAZAPINE [Suspect]
     Indication: MAJOR DEPRESSION
     Dosage: 30 MG QD ORAL
     Route: 048
     Dates: start: 20090101
  5. GABAPENTIN [Suspect]
     Indication: EPILEPSY
     Dosage: 200 MG QD ORAL
     Route: 048
     Dates: start: 20090101
  6. NORITREN (NORITREN-NORTRIPTYLINE 10 MG (NOT SPECIFIED) [Suspect]
     Indication: MAJOR DEPRESSION
     Dosage: 20 MG QD ORAL
     Route: 048
     Dates: start: 20090101
  7. LACIPIL (LACIPIL-LACIDIPINE) 4 MG (NOT SPECIFIED) [Suspect]
     Indication: HYPERTENSION
     Dosage: 4 MG QD ORAL
     Route: 048
     Dates: start: 20090101

REACTIONS (4)
  - BRADYPHRENIA [None]
  - HEART RATE DECREASED [None]
  - SOMNOLENCE [None]
  - BLOOD PRESSURE DECREASED [None]
